FAERS Safety Report 22250876 (Version 2)
Quarter: 2023Q4

REPORT INFORMATION
  Report Type: Report from Study
  Country: US (occurrence: US)
  Receive Date: 20230425
  Receipt Date: 20231101
  Transmission Date: 20240110
  Serious: Yes (Hospitalization, Other)
  Sender: FDA-Public Use
  Company Number: US-BIOVITRUM-2022US10107

PATIENT
  Age: 28 Year
  Sex: Male

DRUGS (4)
  1. KINERET [Suspect]
     Active Substance: ANAKINRA
     Indication: Still^s disease
     Dosage: 100MG, TWICE DAILY
     Route: 058
  2. KINERET [Suspect]
     Active Substance: ANAKINRA
     Dosage: 100MG, DAILY
     Route: 058
     Dates: start: 202206
  3. KINERET [Suspect]
     Active Substance: ANAKINRA
     Dosage: 100MG, DAILY
     Route: 058
     Dates: start: 20220701
  4. KINERET [Suspect]
     Active Substance: ANAKINRA
     Dosage: 100MG, DAILY
     Route: 058
     Dates: start: 20220810

REACTIONS (12)
  - White blood cell count decreased [Unknown]
  - Off label use [Not Recovered/Not Resolved]
  - Injection site pain [Unknown]
  - Injection site rash [Recovered/Resolved]
  - Insomnia [Unknown]
  - Headache [Unknown]
  - Product dose omission in error [Unknown]
  - Product dose omission issue [Unknown]
  - Illness [Unknown]
  - Acne [Unknown]
  - Hepatitis [Unknown]
  - Gastritis [Unknown]

NARRATIVE: CASE EVENT DATE: 20220701
